FAERS Safety Report 10965249 (Version 3)
Quarter: 2015Q2

REPORT INFORMATION
  Report Type: Spontaneous
  Country: US (occurrence: US)
  Receive Date: 20150330
  Receipt Date: 20150520
  Transmission Date: 20150821
  Serious: Yes (Other)
  Sender: FDA-Public Use
  Company Number: US-AUROBINDO-AUR-APL-2015-02658

PATIENT
  Age: 26 Year
  Sex: Female

DRUGS (1)
  1. MINOCYCLINE [Suspect]
     Active Substance: MINOCYCLINE\MINOCYCLINE HYDROCHLORIDE
     Indication: ACNE
     Dosage: UNK
     Route: 065

REACTIONS (15)
  - Red blood cell sedimentation rate increased [Recovered/Resolved]
  - Hypoaesthesia [Recovered/Resolved]
  - Motor dysfunction [Recovered/Resolved]
  - Vasculitis [Recovered/Resolved]
  - Skin hyperpigmentation [Recovered/Resolved]
  - Upper motor neurone lesion [Recovered/Resolved]
  - Antineutrophil cytoplasmic antibody positive [Recovered/Resolved]
  - Histone antibody positive [Recovered/Resolved]
  - Antinuclear antibody positive [Recovered/Resolved]
  - Polyarteritis nodosa [Recovered/Resolved]
  - Dysarthria [Recovered/Resolved]
  - Rash erythematous [Recovered/Resolved]
  - Ischaemic stroke [Recovered/Resolved]
  - Mitral valve incompetence [Recovered/Resolved]
  - Skin lesion [Recovered/Resolved]
